FAERS Safety Report 8861927 (Version 1)
Quarter: 2012Q4

REPORT INFORMATION
  Report Type: 
  Country: DE (occurrence: DE)
  Receive Date: 20121026
  Receipt Date: 20121026
  Transmission Date: 20130627
  Serious: Yes (Hospitalization)
  Sender: FDA-Public Use
  Company Number: DE-AMGEN-DEUSP2012067709

PATIENT
  Age: 50 Year
  Sex: Female

DRUGS (4)
  1. ENBREL [Suspect]
     Indication: RHEUMATOID ARTHRITIS
     Dosage: UNK
     Dates: start: 20120227, end: 20120724
  2. RAMIPRIL [Concomitant]
     Dosage: UNK UNK, UNK
  3. BISOPROLOL [Concomitant]
     Dosage: UNK UNK, UNK
  4. RIVAROXABAN [Concomitant]
     Dosage: UNK UNK, UNK

REACTIONS (2)
  - Salpingitis [Not Recovered/Not Resolved]
  - Inflammation [Not Recovered/Not Resolved]
